FAERS Safety Report 23785164 (Version 1)
Quarter: 2024Q2

REPORT INFORMATION
  Report Type: Spontaneous
  Country: US (occurrence: None)
  Receive Date: 20240425
  Receipt Date: 20240425
  Transmission Date: 20240715
  Serious: Yes (Hospitalization)
  Sender: FDA-Public Use
  Company Number: None

PATIENT
  Age: 81 Year
  Sex: Male
  Weight: 84 kg

DRUGS (1)
  1. ZOLEDRONIC ACID [Suspect]
     Active Substance: ZOLEDRONIC ACID
     Indication: Hypercalcaemia
     Dosage: 4 MG ONCE IV
     Route: 042
     Dates: start: 20230330, end: 20230330

REACTIONS (4)
  - Arthralgia [None]
  - Myalgia [None]
  - Pain [None]
  - Infusion related reaction [None]

NARRATIVE: CASE EVENT DATE: 20230406
